FAERS Safety Report 5067893-9 (Version None)
Quarter: 2006Q3

REPORT INFORMATION
  Report Type: 
  Country: None (occurrence: None)
  Receive Date: 20060731
  Receipt Date: 20060721
  Transmission Date: 20061208
  Serious: Yes (Hospitalization)
  Sender: FDA-Public Use
  Company Number: 012291

PATIENT
  Age: 77 Year
  Sex: Female

DRUGS (3)
  1. PRIALT [Suspect]
     Indication: BACK PAIN
     Dosage: 0.1 UG, ONCE/HOUR, INTRATHECAL  , 0.5 UG, ONCE/HOUR, INTRATHECAL
     Route: 037
     Dates: start: 20060520, end: 20060501
  2. PRIALT [Suspect]
     Indication: BACK PAIN
     Dosage: 0.1 UG, ONCE/HOUR, INTRATHECAL  , 0.5 UG, ONCE/HOUR, INTRATHECAL
     Route: 037
     Dates: start: 20060526
  3. ULTRAM [Concomitant]

REACTIONS (5)
  - ANXIETY [None]
  - CHEST PAIN [None]
  - CONFUSIONAL STATE [None]
  - NAUSEA [None]
  - VOMITING [None]
